FAERS Safety Report 9146186 (Version 1)
Quarter: 2013Q1

REPORT INFORMATION
  Report Type: Spontaneous
  Country: US (occurrence: None)
  Receive Date: 20130227
  Receipt Date: 20130227
  Transmission Date: 20140127
  Serious: Yes (Life-Threatening, Hospitalization)
  Sender: FDA-Public Use
  Company Number: None

PATIENT
  Age: 56 Year
  Sex: Female

DRUGS (4)
  1. INSULIN [Suspect]
     Dosage: 1 VIAL SQ
     Route: 058
     Dates: start: 20121028, end: 20121030
  2. NOVOLOG [Suspect]
     Dosage: 1 VIAL SQ
     Route: 058
     Dates: start: 20121028, end: 20121030
  3. DILUTING MEDIUM FOR NOVOLOG [Concomitant]
  4. NOVOLOG INSULIN NDC NUMBER [Concomitant]

REACTIONS (1)
  - Circumstance or information capable of leading to medication error [None]
